FAERS Safety Report 9442451 (Version 2)
Quarter: 2013Q4

REPORT INFORMATION
  Report Type: Spontaneous
  Country: US (occurrence: US)
  Receive Date: 20130806
  Receipt Date: 20131216
  Transmission Date: 20140711
  Serious: Yes (Hospitalization, Other)
  Sender: FDA-Public Use
  Company Number: US-INCYTE CORPORATION-2013IN001735

PATIENT
  Age: 75 Year
  Sex: Female
  Weight: 68.93 kg

DRUGS (22)
  1. JAKAFI [Suspect]
     Indication: MYELOFIBROSIS
     Dosage: 5 MG, BID
     Route: 048
     Dates: start: 20130523, end: 2013
  2. JAKAFI [Suspect]
     Dosage: 5 MG, QD
     Route: 048
     Dates: start: 20130611, end: 201306
  3. JAKAFI [Suspect]
     Dosage: 5 MG, BID
     Route: 048
     Dates: start: 20130618, end: 20130706
  4. JAKAFI [Suspect]
     Dosage: 5 MG, BID
     Route: 048
     Dates: start: 20130708
  5. ADVAIR [Concomitant]
     Dosage: 2 PUFFS DAILY
  6. ALLOPURINOL [Concomitant]
     Dosage: 300 MG DAILY
  7. ATIVAN [Concomitant]
     Dosage: 1 TAB EVERY DAY BEFORE SLEEP
  8. CALTRATE                           /00944201/ [Concomitant]
     Dosage: 600 MG, BID
  9. ECONAZOLE [Concomitant]
     Dosage: 1% AS NEEDED
  10. FLUZONE                            /00780601/ [Concomitant]
  11. FOLVITE                            /00024201/ [Concomitant]
     Dosage: 1 MG DAILY
  12. IMODIUM [Concomitant]
  13. LASIX                              /00032601/ [Concomitant]
     Dosage: 60 MG, QD
  14. LOVAZA [Concomitant]
     Dosage: 1000 MG TWICE A DAY
  15. NORVASC [Concomitant]
     Dosage: 10 MG DAILY
  16. PNEUMOVAX [Concomitant]
     Dosage: UNK
     Dates: start: 20071025, end: 20071025
  17. PREVACID [Concomitant]
     Dosage: 30 MG TWICE DAILY
  18. TOPROL XL [Concomitant]
     Dosage: 100 MG IN THE MORNING
  19. TYLENOL ARTHRITIS [Concomitant]
     Dosage: 2 TABS TWICE A DAY
  20. VASOTEC                            /00574902/ [Concomitant]
     Dosage: 10 MG TWICE A DAY
  21. ZOCOR [Concomitant]
     Dosage: 20 MG EVERY OTHER DAY
  22. ZOLOFT [Concomitant]
     Dosage: 75 MG DAILY

REACTIONS (19)
  - Pyrexia [Recovered/Resolved]
  - Anaemia [Recovered/Resolved]
  - Epstein-Barr virus test positive [Recovered/Resolved]
  - Dyspnoea [Recovered/Resolved]
  - Fatigue [Recovered/Resolved]
  - Malaise [Recovered/Resolved]
  - Hyperhidrosis [Recovered/Resolved]
  - Leukocytosis [Recovered/Resolved]
  - Decreased appetite [Recovered/Resolved]
  - Oedema peripheral [Recovered/Resolved]
  - Diarrhoea [Recovered/Resolved]
  - Abdominal pain [Recovered/Resolved]
  - Nausea [Recovered/Resolved]
  - Vomiting [Recovered/Resolved]
  - Hypomagnesaemia [Recovered/Resolved]
  - Hypokalaemia [Recovered/Resolved]
  - Insomnia [Recovered/Resolved]
  - Injection site pain [Recovered/Resolved]
  - Headache [Recovered/Resolved]
